FAERS Safety Report 13186641 (Version 1)
Quarter: 2017Q1

REPORT INFORMATION
  Report Type: Spontaneous
  Country: BE (occurrence: BE)
  Receive Date: 20170205
  Receipt Date: 20170205
  Transmission Date: 20170428
  Serious: Yes (Other)
  Sender: FDA-Public Use
  Company Number: PHHY2017BE013731

PATIENT
  Age: 22 Year
  Sex: Female
  Weight: 68 kg

DRUGS (6)
  1. IBUPROFEN. [Concomitant]
     Active Substance: IBUPROFEN
     Indication: MIGRAINE
     Route: 048
  2. SUMATRIPTAN SANDOZ [Suspect]
     Active Substance: SUMATRIPTAN
     Indication: MIGRAINE WITHOUT AURA
     Dosage: 25 MG, PRN
     Route: 048
  3. DUOVENT [Concomitant]
     Active Substance: FENOTEROL HYDROBROMIDE
     Indication: ASTHMA
     Dosage: 1 PER ATTACK, PRN
     Route: 055
     Dates: start: 2016
  4. NASONEX [Concomitant]
     Active Substance: MOMETASONE FUROATE
     Indication: RHINITIS
     Dosage: 1 PUFF IN EACH NOSTRIL, BID
     Route: 045
     Dates: start: 2012
  5. NUVARING [Concomitant]
     Active Substance: ETHINYL ESTRADIOL\ETONOGESTREL
     Indication: CONTRACEPTION
     Dosage: UNK UNK, QMO
     Route: 067
     Dates: start: 2015
  6. DAFALGAN [Concomitant]
     Active Substance: ACETAMINOPHEN
     Indication: MIGRAINE
     Route: 048

REACTIONS (3)
  - Nausea [Recovered/Resolved]
  - Dizziness [Recovered/Resolved]
  - Delirium [Recovered/Resolved]

NARRATIVE: CASE EVENT DATE: 20170120
